FAERS Safety Report 24220014 (Version 3)
Quarter: 2025Q2

REPORT INFORMATION
  Report Type: Spontaneous
  Country: PT (occurrence: PT)
  Receive Date: 20240817
  Receipt Date: 20250609
  Transmission Date: 20250717
  Serious: Yes (Life-Threatening, Hospitalization, Other)
  Sender: AUROBINDO
  Company Number: PT-AstraZeneca-2024A176046

PATIENT
  Age: 78 Year
  Sex: Female

DRUGS (3)
  1. DAPAGLIFLOZIN [Interacting]
     Active Substance: DAPAGLIFLOZIN
     Indication: Product used for unknown indication
     Route: 048
  2. ROSUVASTATIN CALCIUM [Interacting]
     Active Substance: ROSUVASTATIN CALCIUM
     Indication: Coronary artery disease
     Route: 048
  3. ROSUVASTATIN CALCIUM [Interacting]
     Active Substance: ROSUVASTATIN CALCIUM
     Route: 048

REACTIONS (3)
  - Acute kidney injury [Recovered/Resolved]
  - Drug interaction [Recovered/Resolved]
  - Rhabdomyolysis [Recovered/Resolved]
